FAERS Safety Report 25777602 (Version 1)
Quarter: 2025Q3

REPORT INFORMATION
  Report Type: Report from Study
  Country: US (occurrence: US)
  Receive Date: 20250909
  Receipt Date: 20250909
  Transmission Date: 20251020
  Serious: No
  Sender: SUNOVION
  Company Number: US-SUMITOMO PHARMA SWITZERLAND GMBH-2025SPA011293

PATIENT
  Age: 68 Year
  Sex: Male

DRUGS (5)
  1. ORGOVYX [Suspect]
     Active Substance: RELUGOLIX
     Indication: Prostate cancer
     Route: 048
     Dates: start: 20250702, end: 20250702
  2. ORGOVYX [Suspect]
     Active Substance: RELUGOLIX
     Route: 048
  3. Athletic Greens ag1 [Concomitant]
  4. ARMOUR THYROID [Concomitant]
     Active Substance: THYROID, PORCINE
  5. TEA LEAF [Concomitant]
     Active Substance: TEA LEAF

REACTIONS (2)
  - Pain [Unknown]
  - Fatigue [Unknown]
